FAERS Safety Report 22023243 (Version 2)
Quarter: 2023Q2

REPORT INFORMATION
  Report Type: Report from Study
  Country: DE (occurrence: DE)
  Receive Date: 20230223
  Receipt Date: 20230622
  Transmission Date: 20230721
  Serious: Yes (Hospitalization, Other)
  Sender: FDA-Public Use
  Company Number: DE-UCBSA-2023006121

PATIENT
  Sex: Female

DRUGS (7)
  1. STELARA [Suspect]
     Active Substance: USTEKINUMAB
     Indication: Product used for unknown indication
     Dosage: 520 MILLIGRAM, ONE TIME DOSE
     Route: 041
     Dates: start: 20220609, end: 20220609
  2. STELARA [Suspect]
     Active Substance: USTEKINUMAB
     Dosage: 90 MILLIGRAM, EVERY 12 WEEKS
     Route: 058
     Dates: start: 20220804
  3. CERTOLIZUMAB PEGOL [Suspect]
     Active Substance: CERTOLIZUMAB PEGOL
     Indication: Axial spondyloarthritis
     Dosage: 200 MILLIGRAM, EV 2 WEEKS(QOW)
     Route: 065
     Dates: start: 20220224, end: 20220429
  4. COSENTYX [Concomitant]
     Active Substance: SECUKINUMAB
     Indication: Product used for unknown indication
     Dosage: 150 MILLIGRAM
     Dates: start: 20210426, end: 20210815
  5. COSENTYX [Concomitant]
     Active Substance: SECUKINUMAB
     Dosage: 150 MILLIGRAM
     Dates: start: 20210215, end: 20210329
  6. METHOTREXATE [Concomitant]
     Active Substance: METHOTREXATE
     Indication: Product used for unknown indication
     Dosage: 10 MILLIGRAM
     Route: 065
     Dates: start: 20171101, end: 20210417
  7. ETORICOXIB [Concomitant]
     Active Substance: ETORICOXIB
     Indication: Product used for unknown indication
     Dosage: 30 MILLIGRAM
     Route: 065
     Dates: start: 20210407, end: 20210505

REACTIONS (2)
  - Basal cell carcinoma [Recovered/Resolved]
  - Anal fistula [Recovered/Resolved]

NARRATIVE: CASE EVENT DATE: 20220329
